FAERS Safety Report 7060406-1 (Version None)
Quarter: 2010Q4

REPORT INFORMATION
  Report Type: 
  Country: None (occurrence: None)
  Receive Date: 20101025
  Receipt Date: 20101014
  Transmission Date: 20110411
  Serious: Yes (Other)
  Sender: FDA-Public Use
  Company Number: BR-BAYER-200916655LA

PATIENT
  Age: 19 Year
  Sex: Female

DRUGS (9)
  1. BETAFERON [Suspect]
     Indication: MULTIPLE SCLEROSIS
     Dosage: TOTAL DAILY DOSE: 8 MIU
     Route: 058
     Dates: start: 20081101
  2. BETAFERON [Suspect]
     Dosage: TOTAL DAILY DOSE: 8 MIU
     Route: 058
     Dates: end: 20100101
  3. BETAFERON [Suspect]
     Dosage: STOPPED BETAJECT 6 WEEKS BEFORE THE REPORT
     Route: 058
     Dates: start: 20100101
  4. PHYTOTHERAPIC DRUG [Concomitant]
     Indication: INSOMNIA
     Route: 048
  5. DORFLEX [Concomitant]
     Indication: MALAISE
     Route: 048
     Dates: start: 20090601, end: 20100727
  6. PANTOPRAZOLE [Concomitant]
     Indication: GASTROOESOPHAGEAL REFLUX PROPHYLAXIS
     Dosage: TOTAL DAILY DOSE: 40 MG  UNIT DOSE: 40 MG
     Route: 048
     Dates: end: 20100101
  7. MOTILIUM [Concomitant]
     Indication: GASTROOESOPHAGEAL REFLUX PROPHYLAXIS
     Dosage: AS USED: 3 DF
     Route: 048
     Dates: end: 20100101
  8. OMEPRAZOLE [Concomitant]
     Indication: GASTRITIS
     Dosage: AS USED: 20 MG  UNIT DOSE: 20 MG
     Route: 048
     Dates: start: 20100701
  9. NALDECON [Concomitant]
     Indication: RHINITIS
     Route: 045
     Dates: start: 20060101

REACTIONS (25)
  - ABDOMINAL DISCOMFORT [None]
  - ASTHENIA [None]
  - CHILLS [None]
  - DRY EYE [None]
  - DYSPEPSIA [None]
  - ERUCTATION [None]
  - FALL [None]
  - FATIGUE [None]
  - FEELING COLD [None]
  - GASTROOESOPHAGEAL REFLUX DISEASE [None]
  - HEAD DISCOMFORT [None]
  - HEADACHE [None]
  - INJECTION SITE DISCOLOURATION [None]
  - INJECTION SITE DISCOMFORT [None]
  - INJECTION SITE ERYTHEMA [None]
  - INJECTION SITE HAEMORRHAGE [None]
  - INJECTION SITE PAIN [None]
  - INSOMNIA [None]
  - LEARNING DISORDER [None]
  - LISTLESS [None]
  - MALAISE [None]
  - MULTIPLE SCLEROSIS [None]
  - OPTIC NERVE CUPPING [None]
  - REFLUX GASTRITIS [None]
  - SCAR [None]
